FAERS Safety Report 5256738-X (Version None)
Quarter: 2007Q1

REPORT INFORMATION
  Report Type: 
  Country: None (occurrence: None)
  Receive Date: 20070306
  Receipt Date: 20070302
  Transmission Date: 20070707
  Serious: Yes (Other)
  Sender: FDA-Public Use
  Company Number: GB-BRISTOL-MYERS SQUIBB COMPANY-13666938

PATIENT
  Age: 72 Year
  Sex: Male

DRUGS (11)
  1. ARIPIPRAZOLE [Suspect]
     Route: 048
  2. CLOZARIL [Suspect]
     Indication: SCHIZOPHRENIA
     Route: 048
     Dates: start: 20030101
  3. ASPIRIN [Concomitant]
     Indication: CARDIAC DISORDER
     Route: 048
     Dates: start: 20060530
  4. ATORVASTATIN [Concomitant]
     Route: 048
  5. CLONAZEPAM [Concomitant]
     Indication: RESTLESS LEGS SYNDROME
     Route: 048
     Dates: start: 20060614
  6. DOMPERIDONE [Concomitant]
     Indication: GASTRITIS
     Route: 048
     Dates: start: 20060614
  7. ESOMEPRAZOLE MAGNESIUM [Concomitant]
     Indication: GASTRITIS
     Route: 048
     Dates: start: 20060530
  8. FUROSEMIDE [Concomitant]
     Indication: BLOOD PRESSURE
     Route: 048
     Dates: start: 20060530
  9. GLICLAZIDE [Concomitant]
     Indication: DIABETES MELLITUS
     Route: 048
  10. ACETAMINOPHEN [Concomitant]
     Indication: PAIN
     Route: 048
  11. PERINDOPRIL ERBUMINE [Concomitant]
     Route: 048

REACTIONS (9)
  - BENIGN COLONIC NEOPLASM [None]
  - DIABETES MELLITUS [None]
  - GASTRITIS [None]
  - HAEMOGLOBIN DECREASED [None]
  - MYELODYSPLASTIC SYNDROME [None]
  - OESOPHAGITIS [None]
  - PLATELET COUNT INCREASED [None]
  - POLYP [None]
  - RESTLESS LEGS SYNDROME [None]
